FAERS Safety Report 6485395-X (Version None)
Quarter: 2009Q4

REPORT INFORMATION
  Report Type: 
  Country: None (occurrence: None)
  Receive Date: 20091204
  Receipt Date: 20091120
  Transmission Date: 20100525
  Serious: Yes (Hospitalization, Other)
  Sender: FDA-Public Use
  Company Number: TRP_06597_2009

PATIENT
  Age: 51 Year
  Sex: Female
  Weight: 49 kg

DRUGS (4)
  1. RIBAVIRIN [Suspect]
     Indication: HEPATITIS C
     Dosage: (DF) ; (DF)
     Dates: start: 20050301, end: 20060101
  2. RIBAVIRIN [Suspect]
     Indication: HEPATITIS C
     Dosage: (DF) ; (DF)
     Dates: start: 20060801, end: 20070101
  3. PEG-INTRON [Suspect]
     Indication: HEPATITIS C
     Dosage: (DF) ; (DOSE REDUCED THREE TIMES)
     Dates: start: 20060301, end: 20060101
  4. PEG-INTRON [Suspect]
     Indication: HEPATITIS C
     Dosage: (DF) ; (DOSE REDUCED THREE TIMES)
     Dates: start: 20060801, end: 20070101

REACTIONS (3)
  - LIVER SARCOIDOSIS [None]
  - NEUTROPHIL COUNT DECREASED [None]
  - SPLENOMEGALY [None]
